FAERS Safety Report 8042815-7 (Version None)
Quarter: 2012Q1

REPORT INFORMATION
  Report Type: 
  Country: None (occurrence: None)
  Receive Date: 20120112
  Receipt Date: 20120104
  Transmission Date: 20120608
  Serious: Yes (Hospitalization)
  Sender: FDA-Public Use
  Company Number: DE-ROCHE-1028740

PATIENT
  Sex: Female

DRUGS (1)
  1. XOLAIR [Suspect]
     Indication: ASTHMA

REACTIONS (4)
  - ASTHMA [None]
  - MATERNAL EXPOSURE DURING PREGNANCY [None]
  - REHABILITATION THERAPY [None]
  - BLOOD IMMUNOGLOBULIN E INCREASED [None]
